FAERS Safety Report 12847811 (Version 1)
Quarter: 2016Q4

REPORT INFORMATION
  Report Type: Spontaneous
  Country: US (occurrence: US)
  Receive Date: 20161014
  Receipt Date: 20161014
  Transmission Date: 20170207
  Serious: No
  Sender: FDA-Public Use
  Company Number: US-JNJFOC-20160908224

PATIENT
  Age: 4 Decade
  Sex: Female
  Weight: 58.06 kg

DRUGS (2)
  1. TYLENOL 8 HR ARTHRITIS PAIN [Suspect]
     Active Substance: ACETAMINOPHEN
     Indication: DYSMENORRHOEA
     Route: 048
  2. TYLENOL 8 HR ARTHRITIS PAIN [Suspect]
     Active Substance: ACETAMINOPHEN
     Indication: DYSMENORRHOEA
     Route: 048
     Dates: start: 20160904, end: 20160904

REACTIONS (3)
  - Abdominal pain upper [Recovering/Resolving]
  - Product packaging issue [Unknown]
  - Incorrect product storage [Recovering/Resolving]
